FAERS Safety Report 7551344-6 (Version None)
Quarter: 2011Q2

REPORT INFORMATION
  Report Type: 
  Country: None (occurrence: None)
  Receive Date: 20110616
  Receipt Date: 20110610
  Transmission Date: 20111010
  Serious: Yes (Other)
  Sender: FDA-Public Use
  Company Number: US-PFIZER INC-2011127492

PATIENT
  Age: 27 Year
  Sex: Female

DRUGS (1)
  1. LYBREL [Suspect]
     Dosage: UNK

REACTIONS (1)
  - CERVICAL DYSPLASIA [None]
